FAERS Safety Report 4593177-9 (Version None)
Quarter: 2005Q1

REPORT INFORMATION
  Report Type: 
  Country: None (occurrence: None)
  Receive Date: 20050224
  Receipt Date: 20040211
  Transmission Date: 20050727
  Serious: No
  Sender: FDA-Public Use
  Company Number: US-BRISTOL-MYERS SQUIBB COMPANY-12514105

PATIENT
  Age: 75 Year
  Sex: Female
  Weight: 43 kg

DRUGS (4)
  1. EXCEDRIN (MIGRAINE) [Suspect]
     Indication: HEADACHE
     Route: 048
     Dates: start: 20040210, end: 20040210
  2. ANTIHYPERTENSIVE [Concomitant]
     Indication: HYPERTENSION
  3. THYROID SUPPLEMENT [Concomitant]
     Indication: THYROID DISORDER
  4. CHOLESTEROL MEDICATION [Concomitant]
     Indication: BLOOD CHOLESTEROL INCREASED

REACTIONS (1)
  - NAUSEA [None]
